FAERS Safety Report 10203825 (Version 1)
Quarter: 2014Q2

REPORT INFORMATION
  Report Type: Spontaneous
  Country: FR (occurrence: None)
  Receive Date: 20140523
  Receipt Date: 20140523
  Transmission Date: 20141212
  Serious: Yes (Hospitalization, Disabling)
  Sender: FDA-Public Use
  Company Number: FR-LHC-2014037

PATIENT
  Age: 20 Year
  Sex: Male

DRUGS (1)
  1. NITROUS OXIDE [Suspect]
     Indication: SICKLE CELL ANAEMIA
     Route: 055

REACTIONS (4)
  - Metabolic disorder [None]
  - Nervous system disorder [None]
  - Sickle cell anaemia with crisis [None]
  - Bladder dysfunction [None]
